FAERS Safety Report 8867186 (Version 1)
Quarter: 2012Q4

REPORT INFORMATION
  Report Type: 
  Country: US (occurrence: US)
  Receive Date: 20121025
  Receipt Date: 20121025
  Transmission Date: 20130627
  Serious: No
  Sender: FDA-Public Use
  Company Number: US-AMGEN-USASP2012015050

PATIENT
  Age: 67 Year
  Sex: Female

DRUGS (9)
  1. ENBREL [Suspect]
     Indication: PRODUCT USED FOR UNKNOWN INDICATION
     Dosage: 50 mg, 2 times/wk
     Route: 058
  2. MULTIVITAMIN                       /00097801/ [Concomitant]
  3. ASPIRIN [Concomitant]
     Dosage: 325 mg, UNK
  4. VITAMIN B COMPLEX [Concomitant]
  5. FENOFIBRATE [Concomitant]
     Dosage: 134 mg, UNK
  6. LISINOPRIL [Concomitant]
     Dosage: 2.5 mg, UNK
  7. HYDROCHLOROTH [Concomitant]
     Dosage: 12.5 mg, UNK
  8. ATENOLOL [Concomitant]
     Dosage: 12.5 mg, UNK
  9. OMEPRAZOLE [Concomitant]
     Dosage: 20 mg, UNK

REACTIONS (3)
  - Injection site erythema [Recovering/Resolving]
  - Injection site reaction [Recovering/Resolving]
  - Injection site pruritus [Recovering/Resolving]
